FAERS Safety Report 24264624 (Version 1)
Quarter: 2024Q3

REPORT INFORMATION
  Report Type: Spontaneous
  Country: IT (occurrence: None)
  Receive Date: 20240829
  Receipt Date: 20240829
  Transmission Date: 20241016
  Serious: Yes (Other)
  Sender: ASTRAZENECA
  Company Number: 2024A190487

PATIENT
  Age: 52 Year
  Sex: Female

DRUGS (4)
  1. OLAPARIB [Suspect]
     Active Substance: OLAPARIB
     Indication: Ovarian cancer
     Route: 048
     Dates: start: 202110
  2. OLAPARIB [Suspect]
     Active Substance: OLAPARIB
     Indication: Metastasis
     Route: 048
     Dates: start: 202110
  3. OLAPARIB [Suspect]
     Active Substance: OLAPARIB
     Indication: Ovarian cancer
     Route: 048
  4. OLAPARIB [Suspect]
     Active Substance: OLAPARIB
     Indication: Metastasis
     Route: 048

REACTIONS (3)
  - Malignant neoplasm progression [Unknown]
  - Anaemia [Unknown]
  - Metastases to central nervous system [Unknown]
